FAERS Safety Report 9810983 (Version 2)
Quarter: 2014Q1

REPORT INFORMATION
  Report Type: Spontaneous
  Country: US (occurrence: US)
  Receive Date: 20140110
  Receipt Date: 20140110
  Transmission Date: 20141002
  Serious: Yes (Other)
  Sender: FDA-Public Use
  Company Number: US-SANOFI-AVENTIS-2013SA024326

PATIENT
  Age: 49 Year
  Sex: Male

DRUGS (31)
  1. PLAVIX [Suspect]
     Indication: ACUTE CORONARY SYNDROME
     Route: 048
     Dates: start: 20130108
  2. PLAVIX [Suspect]
     Indication: ACUTE CORONARY SYNDROME
     Route: 048
     Dates: start: 20130107, end: 20130107
  3. ASPIRIN [Suspect]
     Indication: ACUTE CORONARY SYNDROME
     Route: 048
     Dates: start: 20130107, end: 20130109
  4. ASPIRIN [Suspect]
     Indication: ACUTE CORONARY SYNDROME
     Route: 048
     Dates: start: 20130111
  5. ASPIRIN [Suspect]
     Indication: ACUTE CORONARY SYNDROME
     Route: 048
     Dates: start: 20130110, end: 20130110
  6. HEPARIN SODIUM [Suspect]
     Indication: ACUTE CORONARY SYNDROME
     Route: 042
     Dates: start: 20130107, end: 20130107
  7. ANGIOMAX [Concomitant]
     Route: 040
     Dates: start: 20130110, end: 20130110
  8. ANGIOMAX [Concomitant]
     Route: 040
     Dates: start: 20130110, end: 20130110
  9. AMLODIPINE [Concomitant]
     Dates: start: 20130110, end: 20130110
  10. ATORVASTATIN [Concomitant]
     Dates: start: 20130108, end: 20130109
  11. LASIX [Concomitant]
     Dates: start: 20130108
  12. IMDUR [Concomitant]
     Dates: start: 20130108, end: 20130109
  13. LISINOPRIL [Concomitant]
     Dates: start: 20130108
  14. METOPROLOL [Concomitant]
     Dates: start: 20130107, end: 20130108
  15. METOPROLOL [Concomitant]
     Dates: start: 20130115
  16. METOPROLOL [Concomitant]
     Dates: start: 20130108, end: 20130114
  17. MYLANTA [Concomitant]
     Dates: start: 20130107, end: 20130107
  18. MYLANTA [Concomitant]
     Dates: start: 20130110, end: 20130110
  19. DIAZEPAM [Concomitant]
     Dates: start: 20130107, end: 20130107
  20. DIAZEPAM [Concomitant]
     Dates: start: 20130110, end: 20130110
  21. DIPHENHYDRAMINE [Concomitant]
     Dates: start: 20130110, end: 20130110
  22. DIPHENHYDRAMINE [Concomitant]
     Dates: start: 20130107, end: 20130107
  23. RANITIDINE [Concomitant]
     Dates: start: 20130107, end: 20130107
  24. RANITIDINE [Concomitant]
     Dates: start: 20130110, end: 20130110
  25. PERCOCET [Concomitant]
     Dates: start: 20130110, end: 20130118
  26. NITROGLYCERIN ^SLOVAKOFARMA^ [Concomitant]
     Dates: start: 20130108, end: 20130108
  27. NITROGLYCERIN ^SLOVAKOFARMA^ [Concomitant]
     Dates: start: 20130107, end: 20130108
  28. DOPAMINE [Concomitant]
     Dates: start: 20130110, end: 20130111
  29. NOREPINEPHRINE [Concomitant]
     Dates: start: 20130110, end: 20130111
  30. ACETAMINOPHEN [Concomitant]
     Dates: start: 20130112, end: 20130116
  31. HYDROMORPHONE [Concomitant]
     Dates: start: 20130110, end: 20130110

REACTIONS (1)
  - Catheter site haematoma [Recovered/Resolved]
